FAERS Safety Report 15154504 (Version 1)
Quarter: 2018Q3

REPORT INFORMATION
  Report Type: Spontaneous
  Country: IT (occurrence: IT)
  Receive Date: 20180717
  Receipt Date: 20180717
  Transmission Date: 20181010
  Serious: Yes (Hospitalization)
  Sender: FDA-Public Use
  Company Number: IT-EMD SERONO-9034637

PATIENT
  Age: 25 Year
  Sex: Female

DRUGS (2)
  1. CETRORELIX [Suspect]
     Active Substance: CETRORELIX
     Indication: ASSISTED REPRODUCTIVE TECHNOLOGY
     Route: 058
     Dates: end: 20180629
  2. GONAL?F [Suspect]
     Active Substance: FOLLITROPIN
     Indication: ASSISTED REPRODUCTIVE TECHNOLOGY
     Dates: start: 201806

REACTIONS (3)
  - Rash [Recovered/Resolved]
  - Tongue oedema [Recovered/Resolved]
  - Pharyngeal oedema [Recovered/Resolved]

NARRATIVE: CASE EVENT DATE: 20180629
